FAERS Safety Report 25941300 (Version 1)
Quarter: 2025Q4

REPORT INFORMATION
  Report Type: Report from Study
  Country: EU (occurrence: EU)
  Receive Date: 20251020
  Receipt Date: 20251020
  Transmission Date: 20260118
  Serious: Yes (Other)
  Sender: ROCHE
  Company Number: EU-ROCHE-10000414564

PATIENT
  Age: 82 Year
  Sex: Female

DRUGS (9)
  1. AVASTIN [Suspect]
     Active Substance: BEVACIZUMAB
     Indication: Cystoid macular oedema
     Dosage: 1.25 MG/0.05 ML
     Route: 050
     Dates: start: 20240821
  2. ALCAINE [Concomitant]
     Active Substance: PROPARACAINE HYDROCHLORIDE
  3. POVIDONE-IODINE [Concomitant]
     Active Substance: POVIDONE-IODINE
  4. FLOXAL [Concomitant]
     Active Substance: OFLOXACIN
  5. VANCOMYCIN [Concomitant]
     Active Substance: VANCOMYCIN
  6. VIGAMOX [Concomitant]
     Active Substance: MOXIFLOXACIN HYDROCHLORIDE
  7. SULPHUR HEXAFLUORIDE [Concomitant]
     Active Substance: SULFUR HEXAFLUORIDE
  8. DUCRESSA [Concomitant]
  9. DEXAMETHASONE WZF POLFA [Concomitant]

REACTIONS (3)
  - Off label use [Unknown]
  - Off label use [Unknown]
  - Non-infectious endophthalmitis [Recovered/Resolved]

NARRATIVE: CASE EVENT DATE: 20240823
